FAERS Safety Report 4971509-7 (Version None)
Quarter: 2006Q2

REPORT INFORMATION
  Report Type: 
  Country: None (occurrence: None)
  Receive Date: 20060413
  Receipt Date: 20051214
  Transmission Date: 20061013
  Serious: Yes (Hospitalization, Disabling, Other)
  Sender: FDA-Public Use
  Company Number: PHFR2005GB04056

PATIENT
  Age: 66 Year
  Sex: Male

DRUGS (3)
  1. ZOLADEX [Concomitant]
     Route: 048
  2. CASODEX [Concomitant]
     Route: 048
  3. ZOMETA [Suspect]
     Indication: PROSTATE CANCER
     Dosage: UNK, UNK
     Route: 042
     Dates: end: 20050701

REACTIONS (6)
  - GINGIVAL INFECTION [None]
  - IMPAIRED HEALING [None]
  - OSTEONECROSIS [None]
  - TOOTH EXTRACTION [None]
  - WOUND DEBRIDEMENT [None]
  - WOUND TREATMENT [None]
